FAERS Safety Report 8537727-6 (Version None)
Quarter: 2012Q3

REPORT INFORMATION
  Report Type: 
  Country: None (occurrence: None)
  Receive Date: 20120725
  Receipt Date: 20120720
  Transmission Date: 20120928
  Serious: Yes (Death, Hospitalization)
  Sender: FDA-Public Use
  Company Number: PHHY2012AU063592

PATIENT
  Age: 41 Year
  Sex: Female

DRUGS (4)
  1. METOCLOPRAMIDE HYDROCHLORIDE [Suspect]
     Indication: VOMITING
  2. OLANZAPINE [Suspect]
     Indication: PANIC ATTACK
  3. PHENOXYBENZAMINE [Concomitant]
  4. RADIOTHERAPY [Concomitant]

REACTIONS (12)
  - PHAEOCHROMOCYTOMA [None]
  - NAUSEA [None]
  - HYPERTENSION [None]
  - BODY TEMPERATURE INCREASED [None]
  - FLUSHING [None]
  - ANXIETY [None]
  - SEPSIS [None]
  - VOMITING [None]
  - HYPERHIDROSIS [None]
  - CYANOSIS [None]
  - PANIC ATTACK [None]
  - TREMOR [None]
